FAERS Safety Report 14757765 (Version 4)
Quarter: 2018Q3

REPORT INFORMATION
  Report Type: Spontaneous
  Country: JP (occurrence: JP)
  Receive Date: 20180413
  Receipt Date: 20180903
  Transmission Date: 20181010
  Serious: Yes (Death, Life-Threatening, Hospitalization, Other)
  Sender: FDA-Public Use
  Company Number: JP-BRISTOL-MYERS SQUIBB COMPANY-BMS-2018-033863

PATIENT
  Age: 74 Year
  Sex: Male
  Weight: 50 kg

DRUGS (1)
  1. ORENCIA [Suspect]
     Active Substance: ABATACEPT
     Indication: RHEUMATOID ARTHRITIS
     Dosage: 125 MG, UNK
     Route: 058
     Dates: start: 201411, end: 20180316

REACTIONS (12)
  - Pneumonia staphylococcal [Not Recovered/Not Resolved]
  - C-reactive protein increased [Unknown]
  - Infectious pleural effusion [Not Recovered/Not Resolved]
  - Diabetes mellitus [Unknown]
  - Atrioventricular block [Unknown]
  - Painful respiration [Unknown]
  - Pneumonia [Recovering/Resolving]
  - Pleurisy [Recovering/Resolving]
  - Lung abscess [Fatal]
  - Staphylococcal sepsis [Not Recovered/Not Resolved]
  - Adrenal insufficiency [Unknown]
  - Chest pain [Unknown]

NARRATIVE: CASE EVENT DATE: 201510
